FAERS Safety Report 18055617 (Version 1)
Quarter: 2020Q3

REPORT INFORMATION
  Report Type: Spontaneous
  Country: US (occurrence: US)
  Receive Date: 20200722
  Receipt Date: 20200722
  Transmission Date: 20201103
  Serious: No
  Sender: FDA-Public Use
  Company Number: US-BAYER-2020-144331

PATIENT
  Age: 8 Year
  Sex: Male

DRUGS (1)
  1. MIRALAX [Suspect]
     Active Substance: POLYETHYLENE GLYCOL 3350
     Indication: CONSTIPATION
     Dosage: UNK
     Route: 048

REACTIONS (9)
  - Neck pain [Unknown]
  - Swelling face [Unknown]
  - Peripheral swelling [Unknown]
  - Product use issue [Unknown]
  - Genital swelling [Unknown]
  - Pain in extremity [Unknown]
  - Abdominal distension [Unknown]
  - Swelling [Unknown]
  - Lip swelling [Unknown]
